FAERS Safety Report 5026091-5 (Version None)
Quarter: 2006Q2

REPORT INFORMATION
  Report Type: 
  Country: None (occurrence: None)
  Receive Date: 20060614
  Receipt Date: 20060606
  Transmission Date: 20061013
  Serious: Yes (Death)
  Sender: FDA-Public Use
  Company Number: IT-ROCHE-450775

PATIENT
  Age: 84 Year
  Sex: Female

DRUGS (4)
  1. ROCEPHIN [Suspect]
     Dosage: FORM REPORTED AS VIAL.
     Route: 042
     Dates: start: 20060531, end: 20060601
  2. CIPROFLOXACIN HCL [Suspect]
     Indication: CHRONIC OBSTRUCTIVE PULMONARY DISEASE
     Route: 048
     Dates: start: 20060516, end: 20060528
  3. ACETAMINOPHEN [Suspect]
     Indication: PYREXIA
     Route: 048
     Dates: start: 20060529, end: 20060530
  4. LASIX [Concomitant]
     Route: 048

REACTIONS (3)
  - CARDIAC FAILURE [None]
  - RESPIRATORY FAILURE [None]
  - TOXIC EPIDERMAL NECROLYSIS [None]
